FAERS Safety Report 19681739 (Version 1)
Quarter: 2021Q3

REPORT INFORMATION
  Report Type: Report from Study
  Country: FR (occurrence: FR)
  Receive Date: 20210810
  Receipt Date: 20210810
  Transmission Date: 20211014
  Serious: Yes (Death, Hospitalization)
  Sender: FDA-Public Use
  Company Number: FR-MYLANLABS-2021M1048735

PATIENT
  Age: 61 Year
  Sex: Male
  Weight: 47 kg

DRUGS (6)
  1. CETUXIMAB. [Suspect]
     Active Substance: CETUXIMAB
     Dosage: 770 MILLIGRAM, BIMONTHLY
     Route: 042
     Dates: start: 20170103
  2. OXALIPLATIN. [Suspect]
     Active Substance: OXALIPLATIN
     Indication: COLORECTAL CANCER METASTATIC
     Dosage: UNK
  3. CETUXIMAB. [Suspect]
     Active Substance: CETUXIMAB
     Indication: COLORECTAL CANCER METASTATIC
     Dosage: 750 MILLIGRAM
     Route: 042
     Dates: end: 20170321
  4. 5?FU                               /00098801/ [Suspect]
     Active Substance: FLUOROURACIL
     Indication: COLORECTAL CANCER METASTATIC
     Dosage: 3500 MILLIGRAM, Q3H, OVER 48 HOURS
     Route: 042
     Dates: start: 20170103, end: 20170323
  5. IRINOTECAN [Suspect]
     Active Substance: IRINOTECAN
     Indication: COLORECTAL CANCER METASTATIC
     Dosage: 210 MILLIGRAM
     Route: 042
     Dates: start: 20170103, end: 20170321
  6. 5?FU                               /00098801/ [Suspect]
     Active Substance: FLUOROURACIL
     Dosage: 600 MILLIGRAM
     Route: 040
     Dates: start: 20170103, end: 20170321

REACTIONS (3)
  - Off label use [Unknown]
  - Asthenia [Not Recovered/Not Resolved]
  - Sudden death [Fatal]

NARRATIVE: CASE EVENT DATE: 20170331
